FAERS Safety Report 16617469 (Version 1)
Quarter: 2019Q3

REPORT INFORMATION
  Report Type: Other
  Country: NL (occurrence: GR)
  Receive Date: 20190723
  Receipt Date: 20190723
  Transmission Date: 20191004
  Serious: Yes (Other)
  Sender: FDA-Public Use
  Company Number: NL-KOWA-19EU001932

PATIENT
  Age: 32 Year
  Sex: Male
  Weight: 105 kg

DRUGS (3)
  1. PITAVASTATIN. [Suspect]
     Active Substance: PITAVASTATIN CALCIUM
     Indication: TYPE IIA HYPERLIPIDAEMIA
     Dosage: 2 MG, QD
     Route: 048
  2. ATORVASTATIN [Suspect]
     Active Substance: ATORVASTATIN
     Indication: TYPE IIA HYPERLIPIDAEMIA
     Dosage: 40 MG, QD
     Route: 048
  3. ROSUVASTATIN. [Suspect]
     Active Substance: ROSUVASTATIN
     Indication: TYPE IIA HYPERLIPIDAEMIA
     Dosage: 10 MG, QD

REACTIONS (3)
  - Liver disorder [Recovered/Resolved]
  - Headache [Recovered/Resolved]
  - Myopathy [Recovered/Resolved]

NARRATIVE: CASE EVENT DATE: 20171010
